FAERS Safety Report 22354664 (Version 5)
Quarter: 2023Q2

REPORT INFORMATION
  Report Type: Spontaneous
  Country: BR (occurrence: BR)
  Receive Date: 20230523
  Receipt Date: 20230630
  Transmission Date: 20230721
  Serious: Yes (Other)
  Sender: FDA-Public Use
  Company Number: BR-PFIZER INC-202300182744

PATIENT
  Age: 48 Year
  Sex: Female

DRUGS (17)
  1. ENBREL [Suspect]
     Active Substance: ETANERCEPT
     Indication: Fibromyalgia
     Dosage: 50 MG, WEEKLY
     Route: 058
     Dates: start: 20230412, end: 20230503
  2. ENBREL [Suspect]
     Active Substance: ETANERCEPT
     Indication: Ankylosing spondylitis
     Dosage: 50 MG, WEEKLY
     Route: 058
     Dates: start: 20230412
  3. ENBREL [Suspect]
     Active Substance: ETANERCEPT
     Indication: Sacroiliitis
     Dosage: 50 MG, WEEKLY
     Route: 058
     Dates: start: 20230419
  4. ENBREL [Suspect]
     Active Substance: ETANERCEPT
     Dosage: 50 MG, WEEKLY
     Route: 058
     Dates: start: 20230426
  5. ENBREL [Suspect]
     Active Substance: ETANERCEPT
     Dosage: WEEKLY (ONCE A WEEK)
     Route: 058
     Dates: start: 20230503
  6. ALPRAZOLAM [Concomitant]
     Active Substance: ALPRAZOLAM
     Indication: Depression
     Dosage: 2X/DAY AT NIGHT
  7. ALPRAZOLAM [Concomitant]
     Active Substance: ALPRAZOLAM
     Indication: Anxiety
  8. ALPRAZOLAM [Concomitant]
     Active Substance: ALPRAZOLAM
     Indication: Mental disorder
  9. BUPROPION [Concomitant]
     Active Substance: BUPROPION
     Indication: Depression
     Dosage: 150 MG MORNING
  10. BUPROPION [Concomitant]
     Active Substance: BUPROPION
     Indication: Anxiety
  11. BUPROPION [Concomitant]
     Active Substance: BUPROPION
     Indication: Mental disorder
  12. CYCLOBENZAPRINE [Concomitant]
     Active Substance: CYCLOBENZAPRINE
     Dosage: UNK
  13. HYDROCHLOROTHIAZIDE [Concomitant]
     Active Substance: HYDROCHLOROTHIAZIDE
     Indication: Hypertension
     Dosage: UNK
  14. LOSARTAN [Concomitant]
     Active Substance: LOSARTAN
     Indication: Hypertension
     Dosage: UNK
  15. QUETIAPINE [Concomitant]
     Active Substance: QUETIAPINE
     Indication: Depression
     Dosage: UNK
  16. QUETIAPINE [Concomitant]
     Active Substance: QUETIAPINE
     Indication: Anxiety
  17. QUETIAPINE [Concomitant]
     Active Substance: QUETIAPINE
     Indication: Mental disorder

REACTIONS (11)
  - Injection site inflammation [Recovered/Resolved]
  - Injection site pain [Recovered/Resolved]
  - Injection site pruritus [Recovered/Resolved]
  - Injection site erythema [Recovered/Resolved]
  - Injection site swelling [Recovered/Resolved]
  - Injection site induration [Recovered/Resolved]
  - Injection site hypersensitivity [Recovered/Resolved]
  - Injection site oedema [Recovered/Resolved]
  - Injection site warmth [Recovered/Resolved]
  - Injection site cellulitis [Recovered/Resolved]
  - Somnolence [Recovered/Resolved]

NARRATIVE: CASE EVENT DATE: 20230504
